FAERS Safety Report 4447733-9 (Version None)
Quarter: 2004Q3

REPORT INFORMATION
  Report Type: 
  Country: None (occurrence: None)
  Receive Date: 20040819
  Receipt Date: 20031110
  Transmission Date: 20050211
  Serious: Yes (Other)
  Sender: FDA-Public Use
  Company Number: 233054

PATIENT
  Age: 79 Year
  Sex: Female
  Weight: 104.3 kg

DRUGS (4)
  1. NOVOLIN R [Suspect]
     Indication: INSULIN-REQUIRING TYPE II DIABETES MELLITUS
     Dosage: 70 IU, QD, SUBCUTANEOUS
     Route: 058
     Dates: start: 20030902, end: 20030923
  2. ANTIHYPERTENSIVES [Concomitant]
  3. MICRONASE [Concomitant]
  4. PAXIL [Concomitant]

REACTIONS (2)
  - BLOOD GLUCOSE DECREASED [None]
  - MEDICATION ERROR [None]
